FAERS Safety Report 7327768-9 (Version None)
Quarter: 2011Q1

REPORT INFORMATION
  Report Type: 
  Country: None (occurrence: None)
  Receive Date: 20110224
  Receipt Date: 20110224
  Transmission Date: 20110831
  Serious: No
  Sender: FDA-Public Use
  Company Number: None

PATIENT
  Age: 71 Year
  Sex: Male

DRUGS (4)
  1. ZOSYN [Suspect]
     Dates: start: 20090425, end: 20090512
  2. AMIODARONE HCL [Suspect]
     Indication: LIVER INJURY
     Dates: start: 20090428, end: 20090530
  3. VANCOMYCIN HCL [Suspect]
     Dates: start: 20090425, end: 20090512
  4. NAFCILLIN [Suspect]
     Dates: start: 20090425, end: 20090512

REACTIONS (5)
  - ACUTE MYOCARDIAL INFARCTION [None]
  - BILE DUCT OBSTRUCTION [None]
  - CHOLESTASIS [None]
  - TOXICITY TO VARIOUS AGENTS [None]
  - ENCEPHALOPATHY [None]
